FAERS Safety Report 21722189 (Version 3)
Quarter: 2023Q1

REPORT INFORMATION
  Report Type: Spontaneous
  Country: US (occurrence: US)
  Receive Date: 20221213
  Receipt Date: 20230117
  Transmission Date: 20230417
  Serious: No
  Sender: FDA-Public Use
  Company Number: US-ALKERMES INC.-ALK-2022-005926

PATIENT
  Age: 48 Year
  Sex: Female

DRUGS (6)
  1. VIVITROL [Suspect]
     Active Substance: NALTREXONE
     Indication: Alcoholism
     Dosage: 380 MILLIGRAM, QMO
     Route: 030
     Dates: start: 20220804, end: 20221116
  2. LAMICTAL [Concomitant]
     Active Substance: LAMOTRIGINE
     Indication: Major depression
     Dosage: 25 MILLIGRAM
     Route: 048
     Dates: start: 202209, end: 202211
  3. LAMICTAL [Concomitant]
     Active Substance: LAMOTRIGINE
     Indication: Generalised anxiety disorder
  4. ZYPREXA [Concomitant]
     Active Substance: OLANZAPINE
     Indication: Major depression
     Dosage: 10 MILLIGRAM
     Route: 048
     Dates: start: 202209, end: 202211
  5. ZYPREXA [Concomitant]
     Active Substance: OLANZAPINE
     Indication: Generalised anxiety disorder
  6. TRAZODONE [Concomitant]
     Active Substance: TRAZODONE HYDROCHLORIDE
     Indication: Generalised anxiety disorder
     Dosage: 150 MILLIGRAM
     Route: 048
     Dates: start: 202209, end: 202211

REACTIONS (1)
  - Blood pressure increased [Not Recovered/Not Resolved]

NARRATIVE: CASE EVENT DATE: 20221116
